FAERS Safety Report 23782214 (Version 5)
Quarter: 2024Q3

REPORT INFORMATION
  Report Type: Spontaneous
  Country: US (occurrence: US)
  Receive Date: 20240425
  Receipt Date: 20240723
  Transmission Date: 20241017
  Serious: Yes (Hospitalization, Other)
  Sender: ACCORD
  Company Number: US-Accord-420761

PATIENT
  Age: 77 Year
  Sex: Female
  Weight: 82.1 kg

DRUGS (5)
  1. ETOPOSIDE [Suspect]
     Active Substance: ETOPOSIDE
     Indication: Small cell lung cancer
     Dosage: 196 MILLIGRAM, Q3W, D1-D3
     Route: 042
     Dates: start: 20240226
  2. CARBOPLATIN [Suspect]
     Active Substance: CARBOPLATIN
     Indication: Small cell lung cancer
     Dosage: 472 MILLIGRAM, Q3W
     Route: 042
     Dates: start: 20240226
  3. MACROBID [Concomitant]
     Active Substance: NITROFURANTOIN\NITROFURANTOIN MONOHYDRATE
     Indication: Urinary tract infection
     Route: 048
     Dates: start: 20240321, end: 20240326
  4. CARBOPLATIN [Suspect]
     Active Substance: CARBOPLATIN
     Indication: Small cell lung cancer
     Dosage: 411.75 MILLIGRAM, Q3W
     Route: 042
     Dates: start: 20240520, end: 20240520
  5. ETOPOSIDE [Suspect]
     Active Substance: ETOPOSIDE
     Indication: Small cell lung cancer
     Dosage: 196 MILLIGRAM, Q3W, D1-D3
     Route: 042
     Dates: start: 20240520

REACTIONS (3)
  - Mental status changes [Recovered/Resolved]
  - Anaemia [Not Recovered/Not Resolved]
  - Cerebrovascular accident [Unknown]

NARRATIVE: CASE EVENT DATE: 20240409
